FAERS Safety Report 25467163 (Version 1)
Quarter: 2025Q2

REPORT INFORMATION
  Report Type: Spontaneous
  Country: GB (occurrence: GB)
  Receive Date: 20250623
  Receipt Date: 20250623
  Transmission Date: 20250716
  Serious: Yes (Hospitalization, Other)
  Sender: HETERO
  Company Number: None

PATIENT
  Sex: Male

DRUGS (1)
  1. PREGABALIN [Suspect]
     Active Substance: PREGABALIN
     Indication: Myalgia
     Route: 065
     Dates: start: 20250513, end: 20250518

REACTIONS (2)
  - Occipital lobe stroke [Not Recovered/Not Resolved]
  - Hemianopia [Unknown]

NARRATIVE: CASE EVENT DATE: 20250518
